FAERS Safety Report 11439274 (Version 62)
Quarter: 2021Q3

REPORT INFORMATION
  Report Type: Other
  Country: CA (occurrence: CA)
  Receive Date: 20150901
  Receipt Date: 20210719
  Transmission Date: 20211014
  Serious: Yes (Hospitalization, Other)
  Sender: FDA-Public Use
  Company Number: CA-ROCHE-1628678

PATIENT
  Age: 59 Year
  Sex: Male
  Weight: 69 kg

DRUGS (27)
  1. ACTEMRA [Suspect]
     Active Substance: TOCILIZUMAB
     Indication: RHEUMATOID ARTHRITIS
     Dosage: INTERMITTENTLY RECEIVE PIRS; DOSAGES NOTED ACCORDING TO PIRS AND PRESCRIPTION ENROLMENTS RECEIVED.
     Route: 042
     Dates: start: 20150818, end: 20160212
  2. ACTEMRA [Suspect]
     Active Substance: TOCILIZUMAB
     Route: 042
     Dates: start: 20201215, end: 20210108
  3. ACTEMRA [Suspect]
     Active Substance: TOCILIZUMAB
     Route: 042
     Dates: start: 20210205, end: 20210205
  4. BENADRYL [Suspect]
     Active Substance: DIPHENHYDRAMINE HYDROCHLORIDE
     Indication: PREMEDICATION
     Dosage: ONGOING
     Route: 042
     Dates: start: 20151015
  5. ACTEMRA [Suspect]
     Active Substance: TOCILIZUMAB
     Route: 042
     Dates: start: 20200202, end: 20200303
  6. ACTEMRA [Suspect]
     Active Substance: TOCILIZUMAB
     Route: 042
     Dates: start: 20201027, end: 20201117
  7. ACTEMRA [Suspect]
     Active Substance: TOCILIZUMAB
     Route: 042
     Dates: start: 20161027, end: 20161027
  8. ACTEMRA [Suspect]
     Active Substance: TOCILIZUMAB
     Route: 042
     Dates: start: 20160531, end: 20160531
  9. ACTEMRA [Suspect]
     Active Substance: TOCILIZUMAB
     Route: 042
     Dates: start: 20200623, end: 20200923
  10. ACTEMRA [Suspect]
     Active Substance: TOCILIZUMAB
     Route: 042
     Dates: start: 20210305, end: 20210504
  11. FOLIC ACID. [Concomitant]
     Active Substance: FOLIC ACID
     Indication: PRODUCT USED FOR UNKNOWN INDICATION
  12. CORTISONE [Concomitant]
     Active Substance: CORTISONE
     Indication: PRODUCT USED FOR UNKNOWN INDICATION
     Dosage: UNKNOWN
     Route: 065
  13. ACTEMRA [Suspect]
     Active Substance: TOCILIZUMAB
     Route: 042
     Dates: start: 20200425, end: 20200425
  14. ACTEMRA [Suspect]
     Active Substance: TOCILIZUMAB
     Dosage: INFUSION #16
     Route: 042
     Dates: start: 20170811
  15. ACTEMRA [Suspect]
     Active Substance: TOCILIZUMAB
     Dosage: ONGOING: YES; ?NO PIRS RECEIVED TO CONFIRM IN 2017?2018
     Route: 042
     Dates: start: 20171107
  16. ACTEMRA [Suspect]
     Active Substance: TOCILIZUMAB
     Route: 042
     Dates: start: 20161125, end: 20170912
  17. ACTEMRA [Suspect]
     Active Substance: TOCILIZUMAB
     Route: 042
     Dates: start: 20200525, end: 20200525
  18. PANTOLOC [Concomitant]
     Active Substance: PANTOPRAZOLE SODIUM
     Indication: PRODUCT USED FOR UNKNOWN INDICATION
  19. ACTEMRA [Suspect]
     Active Substance: TOCILIZUMAB
     Route: 042
     Dates: start: 20210629
  20. AMLODIPINE [Concomitant]
     Active Substance: AMLODIPINE BESYLATE
     Indication: PRODUCT USED FOR UNKNOWN INDICATION
  21. ACTEMRA [Suspect]
     Active Substance: TOCILIZUMAB
     Route: 042
     Dates: start: 20160630, end: 20160728
  22. ACTEMRA [Suspect]
     Active Substance: TOCILIZUMAB
     Route: 042
     Dates: start: 20160728
  23. ACTEMRA [Suspect]
     Active Substance: TOCILIZUMAB
     Dosage: NO PIRS AVAILABLE FROM 23?DEC?2016 UNTIL 09?NOV?2019.
     Route: 042
     Dates: start: 20180322, end: 20200107
  24. RITUXAN [Suspect]
     Active Substance: RITUXIMAB
     Indication: RHEUMATOID ARTHRITIS
     Route: 065
     Dates: start: 20090325, end: 20090325
  25. METHOTREXATE. [Concomitant]
     Active Substance: METHOTREXATE
     Indication: PRODUCT USED FOR UNKNOWN INDICATION
     Route: 048
  26. METHOTREXATE. [Concomitant]
     Active Substance: METHOTREXATE
     Route: 048
  27. PREGABALIN. [Concomitant]
     Active Substance: PREGABALIN
     Indication: PRODUCT USED FOR UNKNOWN INDICATION

REACTIONS (59)
  - Cholelithiasis [Unknown]
  - Haematochezia [Unknown]
  - Clostridium difficile infection [Not Recovered/Not Resolved]
  - Drug hypersensitivity [Unknown]
  - Oropharyngeal pain [Recovering/Resolving]
  - Decreased appetite [Not Recovered/Not Resolved]
  - Drug ineffective [Unknown]
  - Oxygen saturation decreased [Unknown]
  - Diarrhoea [Unknown]
  - Blood pressure systolic increased [Unknown]
  - Anal abscess [Recovered/Resolved]
  - Bronchitis [Not Recovered/Not Resolved]
  - Fatigue [Unknown]
  - Headache [Recovering/Resolving]
  - Cough [Not Recovered/Not Resolved]
  - Sputum discoloured [Not Recovered/Not Resolved]
  - Asthenia [Not Recovered/Not Resolved]
  - Hyperthermia [Not Recovered/Not Resolved]
  - Sinusitis [Not Recovered/Not Resolved]
  - White blood cell count increased [Unknown]
  - Dysphagia [Not Recovered/Not Resolved]
  - Hypoaesthesia [Not Recovered/Not Resolved]
  - Nephrolithiasis [Unknown]
  - Abdominal pain upper [Not Recovered/Not Resolved]
  - Body temperature decreased [Unknown]
  - Infusion related reaction [Unknown]
  - Hypoacusis [Not Recovered/Not Resolved]
  - Dyspnoea [Unknown]
  - Myocardial infarction [Unknown]
  - Herpes zoster [Unknown]
  - Oedema peripheral [Not Recovered/Not Resolved]
  - Injection site coldness [Unknown]
  - Erythema [Unknown]
  - Abdominal pain [Unknown]
  - Oedema [Not Recovered/Not Resolved]
  - Weight decreased [Not Recovered/Not Resolved]
  - Rheumatoid arthritis [Not Recovered/Not Resolved]
  - Blood pressure fluctuation [Unknown]
  - Blood pressure diastolic abnormal [Unknown]
  - Blood pressure fluctuation [Unknown]
  - Heart rate increased [Unknown]
  - Dizziness [Unknown]
  - Blood pressure increased [Unknown]
  - Pruritus [Recovered/Resolved]
  - Chills [Recovered/Resolved]
  - Infusion related reaction [Recovered/Resolved]
  - Infusion related reaction [Not Recovered/Not Resolved]
  - Pain [Not Recovered/Not Resolved]
  - Arthralgia [Not Recovered/Not Resolved]
  - Throat irritation [Recovered/Resolved]
  - Acne [Unknown]
  - Blood pressure diastolic decreased [Unknown]
  - Renal cyst [Unknown]
  - Nasopharyngitis [Recovered/Resolved]
  - Back pain [Not Recovered/Not Resolved]
  - Nausea [Not Recovered/Not Resolved]
  - Hyperhidrosis [Unknown]
  - Sensation of foreign body [Unknown]
  - Bladder hypertrophy [Unknown]

NARRATIVE: CASE EVENT DATE: 2015
